FAERS Safety Report 4901672-5 (Version None)
Quarter: 2006Q1

REPORT INFORMATION
  Report Type: 
  Country: None (occurrence: None)
  Receive Date: 20060206
  Receipt Date: 20051003
  Transmission Date: 20060701
  Serious: Yes (Death)
  Sender: FDA-Public Use
  Company Number: US-BRISTOL-MYERS SQUIBB COMPANY-13131123

PATIENT
  Age: 57 Year
  Sex: Male

DRUGS (3)
  1. PARAPLATIN [Suspect]
     Indication: LUNG NEOPLASM MALIGNANT
     Route: 042
     Dates: start: 20050624, end: 20050624
  2. TAXOL [Suspect]
     Indication: LUNG NEOPLASM MALIGNANT
     Route: 042
     Dates: start: 20050624, end: 20050624
  3. MEGACE [Suspect]
     Route: 048

REACTIONS (1)
  - MALIGNANT NEOPLASM PROGRESSION [None]
